FAERS Safety Report 18990294 (Version 6)
Quarter: 2021Q2

REPORT INFORMATION
  Report Type: Spontaneous
  Country: US (occurrence: US)
  Receive Date: 20210310
  Receipt Date: 20210605
  Transmission Date: 20210717
  Serious: No
  Sender: FDA-Public Use
  Company Number: US-LUPIN PHARMACEUTICALS INC.-2021-02852

PATIENT
  Age: 65 Year
  Sex: Female
  Weight: 89.81 kg

DRUGS (3)
  1. CEFUROXIME AXETIL TABLETS USP, 500 MG [Suspect]
     Active Substance: CEFUROXIME AXETIL
     Indication: PULMONARY CONGESTION
  2. NORVASC [Concomitant]
     Active Substance: AMLODIPINE BESYLATE
     Indication: HYPERTENSION
     Dosage: UNK
     Route: 065
  3. CEFUROXIME AXETIL TABLETS USP, 500 MG [Suspect]
     Active Substance: CEFUROXIME AXETIL
     Indication: SINUSITIS
     Dosage: 500 MILLIGRAM, BID
     Route: 048
     Dates: start: 20210208, end: 20210210

REACTIONS (3)
  - Pruritus [Recovered/Resolved]
  - Product quality issue [Unknown]
  - Headache [Recovered/Resolved]

NARRATIVE: CASE EVENT DATE: 202102
